FAERS Safety Report 7738204-2 (Version None)
Quarter: 2011Q3

REPORT INFORMATION
  Report Type: 
  Country: None (occurrence: None)
  Receive Date: 20110908
  Receipt Date: 20110831
  Transmission Date: 20111222
  Serious: Yes (Hospitalization)
  Sender: FDA-Public Use
  Company Number: CA-BAXTER-2011BH027903

PATIENT
  Age: 5 Month
  Sex: Female
  Weight: 6 kg

DRUGS (3)
  1. GAMMAGARD LIQUID [Suspect]
     Indication: KAWASAKI'S DISEASE
     Route: 042
     Dates: start: 20110727, end: 20110727
  2. GAMMAGARD LIQUID [Suspect]
     Route: 042
     Dates: start: 20110727, end: 20110727
  3. GAMUNEX [Suspect]
     Indication: PRODUCT USED FOR UNKNOWN INDICATION
     Route: 042
     Dates: start: 20110724, end: 20110724

REACTIONS (1)
  - ANTI-ERYTHROCYTE ANTIBODY POSITIVE [None]
